FAERS Safety Report 26203511 (Version 1)
Quarter: 2025Q4

REPORT INFORMATION
  Report Type: Spontaneous
  Country: US (occurrence: None)
  Receive Date: 20251224
  Receipt Date: 20251224
  Transmission Date: 20260118
  Serious: Yes (Disabling)
  Sender: FDA-CTU
  Company Number: None

PATIENT
  Age: 39 Year
  Sex: Female
  Weight: 168.75 kg

DRUGS (11)
  1. CLOTRIMAZOLE AND BETAMETHASONE DIPROPIONATE [Suspect]
     Active Substance: BETAMETHASONE\BETAMETHASONE DIPROPIONATE\CLOTRIMAZOLE
     Indication: Ear infection fungal
     Dosage: KEEP IT PACKED TOPICAL
     Route: 061
     Dates: start: 20251107, end: 20251107
  2. CREON [Concomitant]
     Active Substance: PANCRELIPASE AMYLASE\PANCRELIPASE LIPASE\PANCRELIPASE PROTEASE
  3. TOPIRAMATE [Concomitant]
     Active Substance: TOPIRAMATE
  4. TRIAZOLAM [Concomitant]
     Active Substance: TRIAZOLAM
  5. MOUNJARO [Concomitant]
     Active Substance: TIRZEPATIDE
  6. CARVEDILOL [Concomitant]
     Active Substance: CARVEDILOL
  7. medroxypegesterone [Concomitant]
  8. HYDRALAZINE [Concomitant]
     Active Substance: HYDRALAZINE HYDROCHLORIDE
  9. VENLAFAXINE [Concomitant]
     Active Substance: VENLAFAXINE HYDROCHLORIDE
  10. seed probiotic [Concomitant]
  11. v probiotic [Concomitant]

REACTIONS (4)
  - Burning sensation [None]
  - Ear swelling [None]
  - Ear inflammation [None]
  - Hypoacusis [None]

NARRATIVE: CASE EVENT DATE: 20251107
